FAERS Safety Report 14178977 (Version 1)
Quarter: 2017Q4

REPORT INFORMATION
  Report Type: Spontaneous
  Country: US (occurrence: US)
  Receive Date: 20171110
  Receipt Date: 20171110
  Transmission Date: 20180321
  Serious: Yes (Death, Hospitalization)
  Sender: FDA-Public Use
  Company Number: US-ASCEND THERAPEUTICS-2033811

PATIENT
  Age: 51 Year
  Sex: Female

DRUGS (2)
  1. MEDROXYPROGESTERONE ACETATE. [Concomitant]
     Active Substance: MEDROXYPROGESTERONE ACETATE
     Route: 065
  2. ESTROGEL [Suspect]
     Active Substance: ESTRADIOL
     Indication: PRODUCT USED FOR UNKNOWN INDICATION
     Route: 065

REACTIONS (1)
  - Pelvic venous thrombosis [Fatal]
